FAERS Safety Report 8808591 (Version 1)
Quarter: 2012Q4

REPORT INFORMATION
  Report Type: 
  Country: US (occurrence: US)
  Receive Date: 20120926
  Receipt Date: 20120926
  Transmission Date: 20130627
  Serious: No
  Sender: FDA-Public Use
  Company Number: US-PFIZER INC-2012235339

PATIENT
  Age: 62 Year

DRUGS (15)
  1. PROCARDIA XL [Suspect]
     Dosage: UNK
  2. FENOFIBRATE [Concomitant]
     Dosage: 54 mg, 2x/day (With food)
  3. DILTIAZEM [Concomitant]
     Dosage: 120 mg, 1x/day
  4. ENALAPRIL [Concomitant]
     Dosage: UNK mg, 1x/day
  5. HCTZ [Concomitant]
     Dosage: 25 mg, 1x/day
  6. BABY ASA [Concomitant]
     Dosage: UNK, 1x /day (1 baby ASA QD)
  7. MOTRIN [Concomitant]
     Indication: BONE MARROW OEDEMA
     Dosage: 800 mg, q8h
  8. PERCOCET [Concomitant]
     Indication: PAIN
     Dosage: 7.5/325 mg 1-2 tabs q6h PRN
  9. FLAXSEED OIL [Concomitant]
     Dosage: UNK
  10. D3 [Concomitant]
     Dosage: UNK
  11. FISH OIL [Concomitant]
     Dosage: UNK
  12. CALCIUM [Concomitant]
     Dosage: UNK
  13. LUTEIN [Concomitant]
     Dosage: UNK
  14. VITAMIN A [Concomitant]
     Dosage: UNK
  15. VITAMIN C [Concomitant]
     Dosage: UNK, 2x/day

REACTIONS (5)
  - Drug hypersensitivity [Unknown]
  - Alopecia [Unknown]
  - Skin disorder [Unknown]
  - Muscular weakness [Unknown]
  - Pruritus [Unknown]
